FAERS Safety Report 6153603-0 (Version None)
Quarter: 2009Q2

REPORT INFORMATION
  Report Type: 
  Country: None (occurrence: None)
  Receive Date: 20090413
  Receipt Date: 20090401
  Transmission Date: 20091009
  Serious: Yes (Disabling, Other)
  Sender: FDA-Public Use
  Company Number: AU-PFIZER INC-2009175619

PATIENT

DRUGS (1)
  1. ZELDOX [Suspect]
     Dosage: 40MG MANE 60MG NOCTE
     Route: 048
     Dates: start: 20080201

REACTIONS (4)
  - ANXIETY [None]
  - NEGATIVE THOUGHTS [None]
  - OCULOGYRIC CRISIS [None]
  - SEDATION [None]
